FAERS Safety Report 6912081-1 (Version None)
Quarter: 2010Q3

REPORT INFORMATION
  Report Type: 
  Country: None (occurrence: None)
  Receive Date: 20100806
  Receipt Date: 20071210
  Transmission Date: 20110219
  Serious: No
  Sender: FDA-Public Use
  Company Number: US-PFIZER INC-2007098763

PATIENT
  Sex: Female

DRUGS (3)
  1. DILANTIN [Suspect]
  2. PHENYTOIN SODIUM [Suspect]
  3. MESANTOIN [Suspect]

REACTIONS (2)
  - DRUG LEVEL FLUCTUATING [None]
  - UNEVALUABLE EVENT [None]
